FAERS Safety Report 23467754 (Version 1)
Quarter: 2024Q1

REPORT INFORMATION
  Report Type: Spontaneous
  Country: CN (occurrence: CN)
  Receive Date: 20240201
  Receipt Date: 20240201
  Transmission Date: 20240410
  Serious: Yes (Other)
  Sender: FDA-Public Use
  Company Number: CN-TAKEDA-2024TUS008717

PATIENT
  Age: 44 Year
  Sex: Male

DRUGS (4)
  1. ADCETRIS [Suspect]
     Active Substance: BRENTUXIMAB VEDOTIN
     Indication: Hodgkin^s disease mixed cellularity recurrent
     Dosage: 126 MILLIGRAM, 1/WEEK
     Route: 041
     Dates: start: 20231121
  2. ETOPOSIDE [Suspect]
     Active Substance: ETOPOSIDE
     Indication: Hodgkin^s disease mixed cellularity recurrent
     Dosage: 180 MILLIGRAM, QD
     Route: 041
     Dates: start: 20231121
  3. CARBOPLATIN [Suspect]
     Active Substance: CARBOPLATIN
     Indication: Hodgkin^s disease mixed cellularity recurrent
     Dosage: 600 MILLIGRAM, 1/WEEK
     Route: 041
     Dates: start: 20231122
  4. IFOSFAMIDE [Suspect]
     Active Substance: IFOSFAMIDE
     Indication: Hodgkin^s disease mixed cellularity recurrent
     Dosage: 9000 MILLIGRAM, 1/WEEK
     Route: 041
     Dates: start: 20231122

REACTIONS (2)
  - Myelosuppression [Recovering/Resolving]
  - Off label use [Unknown]

NARRATIVE: CASE EVENT DATE: 20231222
